FAERS Safety Report 18752461 (Version 1)
Quarter: 2021Q1

REPORT INFORMATION
  Report Type: Spontaneous
  Country: US (occurrence: US)
  Receive Date: 20210118
  Receipt Date: 20210118
  Transmission Date: 20210419
  Serious: No
  Sender: FDA-Public Use
  Company Number: US-TEVA-2021-US-1868304

PATIENT
  Sex: Female

DRUGS (1)
  1. DULOXETINE. [Suspect]
     Active Substance: DULOXETINE
     Dosage: FREQUENCY NOT REPORTED
     Route: 065

REACTIONS (3)
  - Product formulation issue [Unknown]
  - Adverse drug reaction [Unknown]
  - Abdominal discomfort [Unknown]
